FAERS Safety Report 12579208 (Version 1)
Quarter: 2016Q3

REPORT INFORMATION
  Report Type: Spontaneous
  Country: US (occurrence: US)
  Receive Date: 20160721
  Receipt Date: 20160721
  Transmission Date: 20161109
  Serious: Yes (Other)
  Sender: FDA-Public Use
  Company Number: US-BEH-2016071263

PATIENT
  Age: 71 Year
  Sex: Female

DRUGS (2)
  1. CORTICOSTEROID DERIVATIVES [Suspect]
     Active Substance: CORTICOSTEROID NOS
     Indication: EPIDERMAL NECROSIS
     Route: 065
  2. HUMAN IMMUNOGLOBULIN IV (INN) [Suspect]
     Active Substance: HUMAN IMMUNOGLOBULIN G
     Indication: EPIDERMAL NECROSIS
     Dosage: 1 G/KG, 2 DOSES
     Route: 042

REACTIONS (4)
  - Haemolysis [Recovered/Resolved]
  - Renal tubular necrosis [Recovered/Resolved]
  - Anaemia [Recovered/Resolved]
  - Acute kidney injury [Recovered/Resolved]
